FAERS Safety Report 16230446 (Version 2)
Quarter: 2020Q2

REPORT INFORMATION
  Report Type: Spontaneous
  Country: US (occurrence: US)
  Receive Date: 20190423
  Receipt Date: 20200408
  Transmission Date: 20200713
  Serious: Yes (Other)
  Sender: FDA-Public Use
  Company Number: US-GILEAD-2019-0402942

PATIENT
  Age: 58 Year
  Sex: Male

DRUGS (27)
  1. EVOTAZ [Concomitant]
     Active Substance: ATAZANAVIR SULFATE\COBICISTAT
  2. DIFLUCAN [Concomitant]
     Active Substance: FLUCONAZOLE
  3. ALBUTEROL SULFATE. [Concomitant]
     Active Substance: ALBUTEROL SULFATE
  4. ALENDRONATE SODIUM. [Concomitant]
     Active Substance: ALENDRONATE SODIUM
  5. LEVAQUIN [Concomitant]
     Active Substance: LEVOFLOXACIN
  6. REYATAZ [Concomitant]
     Active Substance: ATAZANAVIR SULFATE
  7. VITAMIN D2 [Concomitant]
     Active Substance: ERGOCALCIFEROL
  8. DIOVAN [Concomitant]
     Active Substance: VALSARTAN
  9. LOTRISONE [Concomitant]
     Active Substance: BETAMETHASONE DIPROPIONATE\CLOTRIMAZOLE
  10. TRUVADA [Suspect]
     Active Substance: EMTRICITABINE\TENOFOVIR DISOPROXIL FUMARATE
     Indication: HIV INFECTION
     Dosage: UNK
     Route: 048
     Dates: start: 20050415, end: 20170717
  11. STROVITE ONE [Concomitant]
     Active Substance: MINERALS\VITAMINS
  12. JULUCA [Concomitant]
     Active Substance: DOLUTEGRAVIR SODIUM\RILPIVIRINE HYDROCHLORIDE
  13. CALCIPOTRIENE AND BETAMETHASONE DIPROPIONATE [Concomitant]
     Active Substance: BETAMETHASONE DIPROPIONATE\CALCIPOTRIENE
  14. ATOVAQUONE. [Concomitant]
     Active Substance: ATOVAQUONE
  15. NORVASC [Concomitant]
     Active Substance: AMLODIPINE BESYLATE
  16. EDARBI [Concomitant]
     Active Substance: AZILSARTAN KAMEDOXOMIL
  17. TRIAMCINOLONE [Concomitant]
     Active Substance: TRIAMCINOLONE
  18. PROVENTIL [Concomitant]
     Active Substance: ALBUTEROL
  19. EXFORGE [Concomitant]
     Active Substance: AMLODIPINE BESYLATE\VALSARTAN
  20. ZITHROMAX [Concomitant]
     Active Substance: AZITHROMYCIN DIHYDRATE
  21. PHENERGAN WITH DEXTROMETHORPHAN [Concomitant]
  22. TOPROL XL [Concomitant]
     Active Substance: METOPROLOL SUCCINATE
  23. CALCIPOTRIENE. [Concomitant]
     Active Substance: CALCIPOTRIENE
  24. KALETRA [Concomitant]
     Active Substance: LOPINAVIR\RITONAVIR
  25. AMBIEN [Concomitant]
     Active Substance: ZOLPIDEM TARTRATE
  26. DESCOVY [Concomitant]
     Active Substance: EMTRICITABINE\TENOFOVIR ALAFENAMIDE FUMARATE
  27. MEPRON [Concomitant]
     Active Substance: ATOVAQUONE

REACTIONS (9)
  - Osteoporosis [Not Recovered/Not Resolved]
  - Pain [Unknown]
  - Economic problem [Unknown]
  - Anhedonia [Unknown]
  - Osteomalacia [Unknown]
  - Emotional distress [Unknown]
  - Bone density decreased [Not Recovered/Not Resolved]
  - Anxiety [Unknown]
  - Chronic kidney disease [Not Recovered/Not Resolved]

NARRATIVE: CASE EVENT DATE: 201701
